FAERS Safety Report 6171109-X (Version None)
Quarter: 2009Q2

REPORT INFORMATION
  Report Type: 
  Country: None (occurrence: None)
  Receive Date: 20090429
  Receipt Date: 20090420
  Transmission Date: 20091009
  Serious: Yes (Other)
  Sender: FDA-Public Use
  Company Number: PHEH2009US03538

PATIENT
  Sex: Female

DRUGS (6)
  1. DIOVAN [Suspect]
     Dosage: 320 MG, UNK
  2. DIOVAN [Suspect]
     Dosage: 320 MG, UNK
  3. ACCUPRIL [Concomitant]
  4. BENADRYL ^WARNER-LAMBERT^               /USA/ [Concomitant]
  5. VITAMINS [Concomitant]
  6. SYNTHROID [Concomitant]

REACTIONS (8)
  - ARTHRALGIA [None]
  - BONE SWELLING [None]
  - DIZZINESS [None]
  - DRUG INEFFECTIVE [None]
  - FATIGUE [None]
  - HYPERSENSITIVITY [None]
  - PAIN IN EXTREMITY [None]
  - SWOLLEN TONGUE [None]
